FAERS Safety Report 17809436 (Version 1)
Quarter: 2020Q2

REPORT INFORMATION
  Report Type: Spontaneous
  Country: CA (occurrence: CA)
  Receive Date: 20200521
  Receipt Date: 20200521
  Transmission Date: 20200714
  Serious: Yes (Death, Hospitalization, Other)
  Sender: FDA-Public Use
  Company Number: CA-AUROBINDO-AUR-APL-2020-025080

PATIENT
  Age: 35 Year
  Sex: Male

DRUGS (21)
  1. CARMUSTINE. [Suspect]
     Active Substance: CARMUSTINE
     Indication: HODGKIN^S DISEASE
     Dosage: UNK, CYCLICAL
     Route: 065
  2. CYCLOPHOSPHAMIDE. [Suspect]
     Active Substance: CYCLOPHOSPHAMIDE
     Indication: HODGKIN^S DISEASE
     Dosage: UNK, CYCLICAL
     Route: 042
  3. PREDNISONE. [Suspect]
     Active Substance: PREDNISONE
     Indication: HODGKIN^S DISEASE
     Dosage: UNK CYCLICAL
     Route: 065
  4. VINBLASTINE [Suspect]
     Active Substance: VINBLASTINE
     Indication: HODGKIN^S DISEASE
     Dosage: UNK, CYCLICAL
     Route: 065
  5. AZACITIDINE. [Suspect]
     Active Substance: AZACITIDINE
     Indication: HODGKIN^S DISEASE
     Dosage: 750 MILLIGRAM/SQ. METER
     Route: 058
  6. BLEOMYCIN SULPHATE [Suspect]
     Active Substance: BLEOMYCIN SULFATE
     Indication: HODGKIN^S DISEASE
     Dosage: UNK, CYCLICAL
     Route: 065
  7. GEMCITABINE. [Suspect]
     Active Substance: GEMCITABINE
     Indication: HODGKIN^S DISEASE
     Dosage: UNK, CYCLICAL
     Route: 065
  8. DEXAMETHASONE. [Suspect]
     Active Substance: DEXAMETHASONE
     Indication: HODGKIN^S DISEASE
     Dosage: UNK, CYCLICAL
     Route: 065
  9. ADCETRIS [Suspect]
     Active Substance: BRENTUXIMAB VEDOTIN
     Indication: HODGKIN^S DISEASE
     Dosage: UNK,CYCLICAL
     Route: 065
  10. CISPLATIN. [Suspect]
     Active Substance: CISPLATIN
     Indication: HODGKIN^S DISEASE
     Dosage: UNK, CYCLICAL
     Route: 065
  11. ETOPOSIDE. [Suspect]
     Active Substance: ETOPOSIDE
     Indication: HODGKIN^S DISEASE
     Dosage: UNK, CYCLICAL
     Route: 065
  12. NIVOLUMAB [Suspect]
     Active Substance: NIVOLUMAB
     Indication: HODGKIN^S DISEASE
     Dosage: 3 MILLIGRAM/KILOGRAM, CYCLICAL
     Route: 042
  13. PREDNISOLONE. [Suspect]
     Active Substance: PREDNISOLONE
     Indication: HODGKIN^S DISEASE
     Dosage: UNK CYCLICAL
     Route: 065
  14. CYTARABINE. [Suspect]
     Active Substance: CYTARABINE
     Indication: HODGKIN^S DISEASE
     Dosage: UNK
     Route: 065
  15. DOXORUBICIN [Suspect]
     Active Substance: DOXORUBICIN
     Indication: HODGKIN^S DISEASE
     Dosage: UNK, CYCLICAL
     Route: 065
  16. PROCARBAZINE [Suspect]
     Active Substance: PROCARBAZINE
     Indication: HODGKIN^S DISEASE
     Dosage: UNK CYCLICAL
     Route: 065
  17. MELPHALAN INJECTION [Suspect]
     Active Substance: MELPHALAN
     Indication: HODGKIN^S DISEASE
     Dosage: UNK
     Route: 065
  18. VINCRISTINE SULFATE LIPOSOME INJECTION [Suspect]
     Active Substance: VINCRISTINE SULFATE
     Indication: HODGKIN^S DISEASE
     Dosage: UNK, CYCLICAL
     Route: 065
  19. DACARBAZINE. [Suspect]
     Active Substance: DACARBAZINE
     Indication: HODGKIN^S DISEASE
     Dosage: UNK, CYCLICAL
     Route: 065
  20. BENDAMUSTINE HYDROCHLORIDE. [Suspect]
     Active Substance: BENDAMUSTINE HYDROCHLORIDE
     Indication: HODGKIN^S DISEASE
     Dosage: UNK, CYCLICAL
     Route: 065
  21. CHLORAMBUCIL [Suspect]
     Active Substance: CHLORAMBUCIL
     Indication: HODGKIN^S DISEASE
     Dosage: UNK, CYCLICAL
     Route: 065

REACTIONS (3)
  - Myositis [Fatal]
  - Malignant neoplasm progression [Fatal]
  - Acute myeloid leukaemia [Fatal]
